FAERS Safety Report 11833264 (Version 1)
Quarter: 2015Q4

REPORT INFORMATION
  Report Type: Spontaneous
  Country: US (occurrence: US)
  Receive Date: 20151214
  Receipt Date: 20151214
  Transmission Date: 20160305
  Serious: No
  Sender: FDA-Public Use
  Company Number: US-PERRIGO-15US000905

PATIENT
  Age: 63 Year
  Sex: Female

DRUGS (2)
  1. MINOXIDIL. [Suspect]
     Active Substance: MINOXIDIL
     Indication: ALOPECIA
     Dosage: 0.5 ML, UNKNOWN
     Route: 061
     Dates: start: 201409, end: 2014
  2. MINOXIDIL. [Suspect]
     Active Substance: MINOXIDIL
     Dosage: 0.25 ML, UNKNOWN
     Route: 061
     Dates: start: 2014

REACTIONS (2)
  - Hypertrichosis [Unknown]
  - Underdose [Unknown]

NARRATIVE: CASE EVENT DATE: 2014
